FAERS Safety Report 12807582 (Version 3)
Quarter: 2018Q1

REPORT INFORMATION
  Report Type: Report from Study
  Country: GR (occurrence: GR)
  Receive Date: 20161004
  Receipt Date: 20180116
  Transmission Date: 20180508
  Serious: Yes (Other)
  Sender: FDA-Public Use
  Company Number: PHHY2016GR130875

PATIENT
  Age: 65 Year
  Sex: Female

DRUGS (4)
  1. TASIGNA [Suspect]
     Active Substance: NILOTINIB
     Indication: CHRONIC MYELOID LEUKAEMIA
     Dosage: 600 MG, QD (2 X 2)
     Route: 048
     Dates: start: 20141126, end: 20151201
  2. GLOBEL [Concomitant]
     Indication: THROMBOSIS PROPHYLAXIS
     Dosage: 5 DAYS, BID (1X1)
     Route: 065
     Dates: start: 20160530
  3. TASIGNA [Suspect]
     Active Substance: NILOTINIB
     Dosage: 600 MG, QD (PER DAY (2 X 2))
     Route: 048
     Dates: start: 20151221
  4. ATORVAL [Concomitant]
     Indication: HYPERCHOLESTEROLAEMIA
     Dosage: 5 DAYS, BID (1X1)
     Route: 065
     Dates: start: 20160530

REACTIONS (1)
  - Carotid artery disease [Not Recovered/Not Resolved]

NARRATIVE: CASE EVENT DATE: 20160527
